FAERS Safety Report 9721563 (Version 4)
Quarter: 2014Q1

REPORT INFORMATION
  Report Type: Report from Study
  Country: IN (occurrence: IN)
  Receive Date: 20131130
  Receipt Date: 20140101
  Transmission Date: 20141002
  Serious: Yes (Other)
  Sender: FDA-Public Use
  Company Number: PHHY2013IN138715

PATIENT
  Age: 48 Year
  Sex: Female

DRUGS (3)
  1. DIOVAN [Suspect]
     Indication: HYPERTENSION
     Dosage: 160 MG, QD
     Route: 048
  2. GLYCOMET [Concomitant]
     Indication: DIABETES MELLITUS
     Route: 048
  3. INSULIN [Concomitant]
     Indication: DIABETES MELLITUS
     Dosage: 14 UNITS MORNING AND 12 UNITS AFTERNOON AND NIGHT
     Route: 042

REACTIONS (2)
  - Cyst [Unknown]
  - Blood pressure fluctuation [Not Recovered/Not Resolved]
